FAERS Safety Report 7555760-8 (Version None)
Quarter: 2011Q2

REPORT INFORMATION
  Report Type: 
  Country: None (occurrence: None)
  Receive Date: 20110618
  Receipt Date: 20110613
  Transmission Date: 20111010
  Serious: Yes (Death, Life-Threatening)
  Sender: FDA-Public Use
  Company Number: TW-BAYER-2011-050359

PATIENT
  Age: 37 Year
  Sex: Female
  Weight: 44.4 kg

DRUGS (9)
  1. SORAFENIB (RAF KINASE INHIBITOR) [Suspect]
  2. DOXYCYCLINE HCL SAWAI [Concomitant]
     Indication: RASH
     Dosage: UNK
     Route: 048
     Dates: start: 20110325, end: 20110328
  3. ACETAMINOPHEN [Concomitant]
     Indication: HEADACHE
     Dosage: DAILY DOSE 500 MG
     Route: 048
     Dates: start: 20110328
  4. MEK INHIBITOR (DIHYDROXYPROP-DIFLU-METHOXYPHEN-CYCLOPROPA-SULFAMI) [Suspect]
     Indication: HEPATIC NEOPLASM MALIGNANT
     Dosage: 30 MG, BID
     Route: 048
     Dates: start: 20110520, end: 20110607
  5. CHLORAMPHENICOL [Concomitant]
     Indication: RASH
     Dosage: 10MG/G
     Route: 061
     Dates: start: 20110420, end: 20110610
  6. LAMIVUDINE [Concomitant]
     Indication: HEPATITIS B
     Dosage: 100 MG
     Route: 048
     Dates: start: 20110318, end: 20110610
  7. CUTIVATE [Concomitant]
     Indication: RASH
     Dosage: 0.05%-5G TUBE
     Route: 061
     Dates: start: 20110325, end: 20110330
  8. COUGH MIXTURE [Concomitant]
     Indication: COUGH
     Dosage: 10ML
     Route: 048
     Dates: start: 20110520
  9. SMECTA [SMECTITE] [Concomitant]
     Indication: DIARRHOEA
     Dosage: 1 PACK
     Route: 048
     Dates: start: 20110415

REACTIONS (1)
  - CONVULSION [None]
